FAERS Safety Report 13618790 (Version 5)
Quarter: 2017Q4

REPORT INFORMATION
  Report Type: Spontaneous
  Country: US (occurrence: US)
  Receive Date: 20170606
  Receipt Date: 20171120
  Transmission Date: 20180320
  Serious: Yes (Death, Hospitalization)
  Sender: FDA-Public Use
  Company Number: US-ACTELION-A-US2017-154752

PATIENT
  Age: 78 Year
  Sex: Female
  Weight: 92.52 kg

DRUGS (4)
  1. WARFARIN [Concomitant]
     Active Substance: WARFARIN
  2. ADEMPAS [Concomitant]
     Active Substance: RIOCIGUAT
  3. OPSUMIT [Suspect]
     Active Substance: MACITENTAN
     Indication: PULMONARY ARTERIAL HYPERTENSION
     Dosage: 10 MG, QD
     Route: 048
  4. TYVASO [Concomitant]
     Active Substance: TREPROSTINIL

REACTIONS (10)
  - Renal failure [Fatal]
  - Blood pressure abnormal [Unknown]
  - Pulmonary arterial hypertension [Unknown]
  - Fluid overload [Unknown]
  - Condition aggravated [Fatal]
  - Blood glucose decreased [Unknown]
  - Blood glucose abnormal [Unknown]
  - Disease progression [Fatal]
  - Cardiac failure congestive [Unknown]
  - Right ventricular failure [Fatal]
